FAERS Safety Report 8893801 (Version 1)
Quarter: 2012Q4

REPORT INFORMATION
  Report Type: 
  Country: US (occurrence: US)
  Receive Date: 20121107
  Receipt Date: 20121107
  Transmission Date: 20130627
  Serious: No
  Sender: FDA-Public Use
  Company Number: US-AMGEN-USASP2011061739

PATIENT
  Age: 71 Year
  Sex: Female

DRUGS (2)
  1. ENBREL [Suspect]
     Indication: ANKYLOSING SPONDYLITIS
     Dosage: 50 mg, qwk
     Dates: start: 20111109
  2. COUMADIN                           /00014802/ [Concomitant]

REACTIONS (2)
  - International normalised ratio increased [Not Recovered/Not Resolved]
  - Injection site pain [Not Recovered/Not Resolved]
